FAERS Safety Report 25900339 (Version 1)
Quarter: 2025Q4

REPORT INFORMATION
  Report Type: Spontaneous
  Country: CN (occurrence: CN)
  Receive Date: 20251009
  Receipt Date: 20251009
  Transmission Date: 20260117
  Serious: Yes (Other)
  Sender: ROCHE
  Company Number: CN-BoehringerIngelheim-2025-BI-098789

PATIENT
  Age: 90 Year
  Sex: Male
  Weight: 70 kg

DRUGS (3)
  1. ALTEPLASE [Suspect]
     Active Substance: ALTEPLASE
     Indication: Cerebral infarction
     Dosage: 10% (6ML)?TOTAL DOSE: 60 MG
     Route: 042
     Dates: start: 20250910, end: 20250910
  2. ALTEPLASE [Suspect]
     Active Substance: ALTEPLASE
     Indication: Thrombolysis
     Dosage: 90% OF THE TOTAL DOSE ?TOTAL DOSE: 60 MG ?INFUSION
     Route: 042
     Dates: start: 20250910, end: 20250910
  3. SODIUM CHLORIDE [Concomitant]
     Active Substance: SODIUM CHLORIDE
     Indication: Cerebral infarction
     Route: 042
     Dates: start: 20250910, end: 20250910

REACTIONS (4)
  - Blood loss anaemia [Recovering/Resolving]
  - Heart rate decreased [Recovering/Resolving]
  - Haemorrhage urinary tract [Recovering/Resolving]
  - Hypotension [Recovering/Resolving]

NARRATIVE: CASE EVENT DATE: 20250910
